FAERS Safety Report 22040460 (Version 1)
Quarter: 2023Q1

REPORT INFORMATION
  Report Type: Spontaneous
  Country: US (occurrence: None)
  Receive Date: 20230225
  Receipt Date: 20230225
  Transmission Date: 20230417
  Serious: Yes (Other)
  Sender: FDA-Public Use
  Company Number: None

PATIENT
  Age: 35 Year
  Sex: Female
  Weight: 56.25 kg

DRUGS (5)
  1. CIPROFLOXACIN HYDROCHLORIDE [Suspect]
     Active Substance: CIPROFLOXACIN HYDROCHLORIDE
     Indication: Urinary tract infection
     Dosage: FREQUENCY : TWICE A DAY;?
     Route: 048
     Dates: start: 20230213, end: 20230215
  2. ORIAHNN [Concomitant]
     Active Substance: ELAGOLIX SODIUM\ESTRADIOL\NORETHINDRONE
  3. VITAMINS [Concomitant]
     Active Substance: VITAMINS
  4. vitamin D [Concomitant]
  5. OMEGA 3 [Concomitant]
     Active Substance: CAPSAICIN

REACTIONS (10)
  - Pain in extremity [None]
  - Arthralgia [None]
  - Arthralgia [None]
  - Back pain [None]
  - Neck pain [None]
  - Headache [None]
  - Pain in extremity [None]
  - Paraesthesia [None]
  - Arthralgia [None]
  - Pain in extremity [None]

NARRATIVE: CASE EVENT DATE: 20230217
